FAERS Safety Report 10033993 (Version 1)
Quarter: 2014Q1

REPORT INFORMATION
  Report Type: Spontaneous
  Country: US (occurrence: None)
  Receive Date: 20140324
  Receipt Date: 20140324
  Transmission Date: 20141002
  Serious: Yes (Hospitalization)
  Sender: FDA-Public Use
  Company Number: None

PATIENT
  Age: 63 Year
  Sex: Female
  Weight: 58.06 kg

DRUGS (2)
  1. OSMOPREP [Suspect]
     Indication: BOWEL PREPARATION
  2. OSMOPREP [Suspect]
     Indication: COLONOSCOPY

REACTIONS (2)
  - Acute phosphate nephropathy [None]
  - Renal failure acute [None]
